FAERS Safety Report 8776912 (Version 1)
Quarter: 2012Q4

REPORT INFORMATION
  Report Type: 
  Country: US (occurrence: US)
  Receive Date: 20120911
  Receipt Date: 20120911
  Transmission Date: 20130627
  Serious: Yes (Hospitalization, Other)
  Sender: FDA-Public Use
  Company Number: US-ASTRAZENECA-2012SE43166

PATIENT
  Age: 70 Year
  Sex: Female
  Weight: 54 kg

DRUGS (11)
  1. BRILINTA [Suspect]
     Indication: STENT PLACEMENT
     Route: 048
     Dates: start: 20120614, end: 20120619
  2. NEXIUM [Suspect]
     Dosage: GENERIC
     Route: 048
  3. ZESTRIL [Suspect]
     Route: 048
     Dates: start: 20120615
  4. METOPROLOL [Suspect]
     Route: 048
  5. PLAVIX [Concomitant]
  6. LOVAZA [Concomitant]
     Route: 048
     Dates: start: 20120615
  7. ASPIRIN [Concomitant]
  8. LEVOTHYROXINE [Concomitant]
     Dosage: 125 MCG DAILY
  9. MULTIVITAMINS [Concomitant]
  10. LORAZEPAM [Concomitant]
     Route: 048
  11. RANITIDINE [Concomitant]
     Route: 048

REACTIONS (8)
  - Loss of consciousness [Unknown]
  - Haemoglobin decreased [Unknown]
  - Gastrointestinal haemorrhage [Recovered/Resolved with Sequelae]
  - Throat irritation [Unknown]
  - Gastrooesophageal reflux disease [Unknown]
  - Haemorrhage [Unknown]
  - Dyspepsia [Unknown]
  - Drug ineffective [Unknown]
